FAERS Safety Report 21087641 (Version 1)
Quarter: 2022Q3

REPORT INFORMATION
  Report Type: Spontaneous
  Country: US (occurrence: None)
  Receive Date: 20220714
  Receipt Date: 20220714
  Transmission Date: 20221027
  Serious: Yes (Other)
  Sender: FDA-Public Use
  Company Number: None

PATIENT
  Age: 52 Year
  Sex: Female
  Weight: 72 kg

DRUGS (14)
  1. KISQALI [Suspect]
     Active Substance: RIBOCICLIB
     Indication: Breast cancer metastatic
     Dosage: FREQUENCY : DAILY;?
     Route: 048
     Dates: start: 20220409
  2. calcium + vitamin D supplement [Concomitant]
  3. ASCORBIC ACID [Concomitant]
     Active Substance: ASCORBIC ACID
  4. B6 supplement [Concomitant]
  5. Vitamin D 2000 units [Concomitant]
  6. Nexium 20 mg [Concomitant]
  7. oxycodone 5 mg tabs [Concomitant]
  8. docusate sodium 100 mg [Concomitant]
  9. IBUPROFEN [Concomitant]
     Active Substance: IBUPROFEN
  10. FLONASE [Concomitant]
     Active Substance: FLUTICASONE PROPIONATE
  11. chorhexidine mouth/throat rinse [Concomitant]
  12. Terocin external patch [Concomitant]
  13. metronidazole external cream [Concomitant]
  14. hydrocortisone 2.5% lotion [Concomitant]

REACTIONS (6)
  - Fatigue [None]
  - Nausea [None]
  - Dizziness [None]
  - Weight decreased [None]
  - Alopecia [None]
  - Vision blurred [None]
